FAERS Safety Report 9937764 (Version 1)
Quarter: 2014Q1

REPORT INFORMATION
  Report Type: Spontaneous
  Country: US (occurrence: US)
  Receive Date: 20140303
  Receipt Date: 20140303
  Transmission Date: 20141002
  Serious: No
  Sender: FDA-Public Use
  Company Number: US-BIOGENIDEC-2014BI016061

PATIENT
  Sex: Female

DRUGS (2)
  1. TECFIDERA [Suspect]
     Indication: MULTIPLE SCLEROSIS
     Route: 048
     Dates: end: 201311
  2. AVONEX [Concomitant]
     Indication: MULTIPLE SCLEROSIS
     Route: 030
     Dates: start: 20111007, end: 20130912

REACTIONS (5)
  - Nephrolithiasis [Unknown]
  - Memory impairment [Not Recovered/Not Resolved]
  - Pain [Recovered/Resolved]
  - Abdominal pain upper [Recovered/Resolved]
  - Flushing [Recovered/Resolved]
